FAERS Safety Report 9793140 (Version 1)
Quarter: 2013Q4

REPORT INFORMATION
  Report Type: Spontaneous
  Country: IT (occurrence: None)
  Receive Date: 20131230
  Receipt Date: 20131230
  Transmission Date: 20140711
  Serious: Yes (Hospitalization)
  Sender: FDA-Public Use
  Company Number: AG-2013-016263

PATIENT
  Age: 80 Year
  Sex: Male

DRUGS (3)
  1. LEUKERAN [Suspect]
     Indication: NON-HODGKIN^S LYMPHOMA
     Dates: start: 20131101, end: 20131130
  2. COUMADIN [Suspect]
     Indication: DEEP VEIN THROMBOSIS
     Dates: start: 20131130
  3. PAROXETINE (PAROXETINE) [Concomitant]

REACTIONS (2)
  - Anaemia [None]
  - Gastric ulcer [None]
